FAERS Safety Report 9724899 (Version 1)
Quarter: 2013Q4

REPORT INFORMATION
  Report Type: Spontaneous
  Country: US (occurrence: US)
  Receive Date: 20131202
  Receipt Date: 20131202
  Transmission Date: 20140711
  Serious: No
  Sender: FDA-Public Use
  Company Number: US-ENDO PHARMACEUTICALS INC.-OXYC20120053

PATIENT
  Sex: Female

DRUGS (2)
  1. OXYCODONE HCL [Suspect]
     Indication: PAIN
     Dosage: UNKNOWN
     Route: 048
     Dates: start: 1997, end: 1998
  2. HYDROCODONE/ACETAMINOPHEN 5MG/500MG [Suspect]
     Indication: PAIN
     Dosage: UNKNOWN
     Route: 048
     Dates: start: 1997, end: 1998

REACTIONS (2)
  - Feeling abnormal [Recovered/Resolved]
  - Drug effect delayed [Recovered/Resolved]
